FAERS Safety Report 9676045 (Version 4)
Quarter: 2014Q1

REPORT INFORMATION
  Report Type: Report from Study
  Country: US (occurrence: US)
  Receive Date: 20131107
  Receipt Date: 20140305
  Transmission Date: 20141002
  Serious: Yes (Other)
  Sender: FDA-Public Use
  Company Number: PHEH2013US023025

PATIENT
  Age: 10 Year
  Sex: Male

DRUGS (1)
  1. TOBI [Suspect]
     Indication: PNEUMONIA
     Dosage: 300 MG/ 5ML BID
     Route: 055
     Dates: start: 201302

REACTIONS (3)
  - Convulsion [Unknown]
  - Malaise [Recovered/Resolved]
  - Dyspnoea [Unknown]
